FAERS Safety Report 8802609 (Version 2)
Quarter: 2015Q1

REPORT INFORMATION
  Report Type: Report from Study
  Country: US (occurrence: US)
  Receive Date: 20120921
  Receipt Date: 20150306
  Transmission Date: 20150721
  Serious: Yes (Death)
  Sender: FDA-Public Use
  Company Number: US-ROCHE-1123224

PATIENT
  Sex: Female

DRUGS (27)
  1. AVASTIN [Suspect]
     Active Substance: BEVACIZUMAB
     Indication: BREAST CANCER FEMALE
     Route: 042
     Dates: start: 20090319
  2. XELODA [Suspect]
     Active Substance: CAPECITABINE
     Indication: BREAST CANCER FEMALE
     Route: 065
     Dates: start: 200711, end: 200801
  3. METHOTREXATE [Concomitant]
     Active Substance: METHOTREXATE
     Dosage: FOR 4 WEEKS
     Route: 039
     Dates: start: 200710
  4. LYRICA [Concomitant]
     Active Substance: PREGABALIN
     Route: 065
     Dates: start: 200807
  5. TESSALON [Concomitant]
     Active Substance: BENZONATATE
  6. CYMBALTA [Concomitant]
     Active Substance: DULOXETINE HYDROCHLORIDE
  7. GEMZAR [Concomitant]
     Active Substance: GEMCITABINE HYDROCHLORIDE
     Route: 065
     Dates: start: 200903
  8. LEUCOVORIN [Concomitant]
     Active Substance: LEUCOVORIN
     Indication: BONE MARROW FAILURE
     Route: 048
  9. IBUPROFEN. [Concomitant]
     Active Substance: IBUPROFEN
  10. FENTANYL. [Concomitant]
     Active Substance: FENTANYL
     Indication: PAIN MANAGEMENT
  11. EXCEDRIN (UNITED STATES) [Concomitant]
     Indication: PAIN
  12. OMEPRAZOLE. [Concomitant]
     Active Substance: OMEPRAZOLE
     Indication: ABDOMINAL DISCOMFORT
  13. AVASTIN [Suspect]
     Active Substance: BEVACIZUMAB
     Indication: BONE CANCER
  14. ALOXI [Concomitant]
     Active Substance: PALONOSETRON HYDROCHLORIDE
     Route: 065
  15. VICODIN [Suspect]
     Active Substance: ACETAMINOPHEN\HYDROCODONE BITARTRATE
     Indication: PRODUCT USED FOR UNKNOWN INDICATION
     Route: 065
  16. ABRAXANE [Concomitant]
     Active Substance: PACLITAXEL
     Route: 065
     Dates: start: 20090319
  17. ZOMETA [Concomitant]
     Active Substance: ZOLEDRONIC ACID
     Route: 042
     Dates: start: 200304
  18. KEPPRA [Concomitant]
     Active Substance: LEVETIRACETAM
  19. ALEVE [Concomitant]
     Active Substance: NAPROXEN SODIUM
  20. DEXAMETHASONE. [Concomitant]
     Active Substance: DEXAMETHASONE
     Route: 065
     Dates: start: 20090319
  21. AVASTIN [Suspect]
     Active Substance: BEVACIZUMAB
     Indication: BONE CANCER
  22. XELODA [Suspect]
     Active Substance: CAPECITABINE
     Dosage: FOR 14 DAYS FOLLOWED BY A 1 WEEK REST
     Route: 048
     Dates: start: 200802, end: 200807
  23. TAXOTERE [Suspect]
     Active Substance: DOCETAXEL
     Indication: PRODUCT USED FOR UNKNOWN INDICATION
     Route: 065
  24. PERCOCET [Suspect]
     Active Substance: ACETAMINOPHEN\OXYCODONE HYDROCHLORIDE
     Indication: PRODUCT USED FOR UNKNOWN INDICATION
     Route: 065
  25. METHOTREXATE [Concomitant]
     Active Substance: METHOTREXATE
     Dosage: FOR 4 WEEKS
     Route: 039
  26. LYRICA [Concomitant]
     Active Substance: PREGABALIN
     Route: 065
  27. LYRICA [Concomitant]
     Active Substance: PREGABALIN
     Route: 065

REACTIONS (32)
  - Dyspnoea exertional [Unknown]
  - Musculoskeletal chest pain [Unknown]
  - Hypoaesthesia [Unknown]
  - Malaise [Unknown]
  - Musculoskeletal pain [Unknown]
  - Decreased appetite [Unknown]
  - Eyelid ptosis [Unknown]
  - Vomiting [Unknown]
  - Headache [Unknown]
  - Metastases to liver [Unknown]
  - Fatigue [Unknown]
  - Asthenia [Unknown]
  - Dysgeusia [Unknown]
  - Weight decreased [Unknown]
  - Diarrhoea [Recovered/Resolved]
  - Arthralgia [Unknown]
  - Myalgia [Unknown]
  - Dyspepsia [Unknown]
  - Ascites [Unknown]
  - Dizziness [Unknown]
  - Hypoxia [Unknown]
  - Muscular weakness [Unknown]
  - Pleural effusion [Unknown]
  - Nausea [Unknown]
  - Death [Fatal]
  - Lacrimation increased [Unknown]
  - Palmar-plantar erythrodysaesthesia syndrome [Unknown]
  - Nasal congestion [Unknown]
  - Abdominal distension [Unknown]
  - Metastases to meninges [Unknown]
  - Neuropathy peripheral [Unknown]
  - Neck pain [Unknown]
